FAERS Safety Report 8794333 (Version 3)
Quarter: 2013Q1

REPORT INFORMATION
  Report Type: Spontaneous
  Country: US (occurrence: US)
  Receive Date: 20120917
  Receipt Date: 20130125
  Transmission Date: 20140127
  Serious: Yes (Hospitalization, Other)
  Sender: FDA-Public Use
  Company Number: US-009507513-1209USA005655

PATIENT
  Age: 59 None
  Sex: Female
  Weight: 99.77 kg

DRUGS (13)
  1. PEPCID [Suspect]
     Indication: GASTRIC DISORDER
     Dosage: UNK
     Route: 048
     Dates: end: 20120727
  2. PEPCID [Suspect]
     Dosage: UNK
     Route: 048
     Dates: start: 201301
  3. CAPTOPRIL [Concomitant]
     Dosage: 50 MG, TID
     Dates: end: 20120727
  4. NORVASC [Concomitant]
     Indication: HYPERTENSION
     Dosage: 5 MG, BID
     Route: 048
     Dates: start: 2002
  5. PLAVIX [Concomitant]
     Indication: CEREBROVASCULAR ACCIDENT
     Dosage: 75 MG, QD
     Route: 048
  6. METFORMIN [Concomitant]
     Indication: DIABETES MELLITUS
     Dosage: 1000 MG, BID
     Route: 048
  7. ASPIRIN [Concomitant]
     Indication: DIABETES MELLITUS
     Dosage: 81 MG, QD
     Route: 048
  8. ASPIRIN [Concomitant]
     Dosage: UNK
  9. SIMVASTATIN TABLETS, USP [Concomitant]
     Indication: HYPERLIPIDAEMIA
     Dosage: 40 MG, UNK
     Route: 048
  10. METOPROLOL [Concomitant]
     Indication: HYPERTENSION
     Dosage: 25 MG, QD
     Route: 048
  11. VICODIN [Concomitant]
     Indication: PAIN
     Dosage: UNK, QD
     Route: 048
  12. FLEXEN (KETOPROFEN) [Concomitant]
     Indication: PAIN
     Dosage: 10,UNK, QD
     Route: 048
  13. LISINOPRIL [Concomitant]
     Indication: HYPERTENSION
     Dosage: 10, UNK, QD
     Route: 048

REACTIONS (5)
  - Chest pain [Recovered/Resolved]
  - Dyspepsia [Recovered/Resolved]
  - Coronary artery occlusion [Recovered/Resolved]
  - Coronary arterial stent insertion [Recovered/Resolved]
  - Drug ineffective [Unknown]
